FAERS Safety Report 12534745 (Version 2)
Quarter: 2016Q3

REPORT INFORMATION
  Report Type: Spontaneous
  Country: US (occurrence: US)
  Receive Date: 20160706
  Receipt Date: 20160711
  Transmission Date: 20161109
  Serious: Yes (Other)
  Sender: FDA-Public Use
  Company Number: US-TEVA-673151USA

PATIENT
  Age: 66 Year
  Sex: Female
  Weight: 63.04 kg

DRUGS (3)
  1. NUVIGIL [Suspect]
     Active Substance: ARMODAFINIL
     Dosage: 250 MILLIGRAM DAILY; CUTTING THE TABLETS IN HALF
     Dates: start: 2011
  2. COPAXONE [Suspect]
     Active Substance: GLATIRAMER ACETATE
     Indication: MULTIPLE SCLEROSIS
     Dates: start: 1999
  3. NUVIGIL [Suspect]
     Active Substance: ARMODAFINIL
     Indication: SOMNOLENCE
     Dosage: 250 MILLIGRAM DAILY;
     Dates: start: 2011

REACTIONS (10)
  - Spinal disorder [Not Recovered/Not Resolved]
  - Blood creatine phosphokinase increased [Not Recovered/Not Resolved]
  - Intentional product use issue [Unknown]
  - Metanephrine urine increased [Not Recovered/Not Resolved]
  - Normetanephrine urine increased [Not Recovered/Not Resolved]
  - Myalgia [Not Recovered/Not Resolved]
  - Connective tissue disorder [Not Recovered/Not Resolved]
  - Collagen disorder [Not Recovered/Not Resolved]
  - Condition aggravated [Not Recovered/Not Resolved]
  - Phaeochromocytoma [Recovered/Resolved]

NARRATIVE: CASE EVENT DATE: 201601
